FAERS Safety Report 4798864-5 (Version None)
Quarter: 2005Q4

REPORT INFORMATION
  Report Type: 
  Country: None (occurrence: None)
  Receive Date: 20051014
  Receipt Date: 20051010
  Transmission Date: 20060501
  Serious: Yes (Congenital Anomaly, Other)
  Sender: FDA-Public Use
  Company Number: GB-JNJFOC-20050906033

PATIENT

DRUGS (3)
  1. LAMOTRIGINE [Suspect]
  2. PHENOBARBITAL TAB [Suspect]
  3. TOPAMAX [Suspect]
     Indication: EPILEPSY

REACTIONS (2)
  - CLEFT LIP AND PALATE [None]
  - DRUG EXPOSURE DURING PREGNANCY [None]
